FAERS Safety Report 7544098-0 (Version None)
Quarter: 2011Q2

REPORT INFORMATION
  Report Type: 
  Country: None (occurrence: None)
  Receive Date: 20110613
  Receipt Date: 20051103
  Transmission Date: 20111010
  Serious: Yes (Hospitalization)
  Sender: FDA-Public Use
  Company Number: PHHO2005MX17548

PATIENT
  Sex: Female

DRUGS (5)
  1. OMEPRAZOLE [Concomitant]
     Indication: GASTRITIS
     Dosage: 1 OT, QD
  2. TENORETIC [Concomitant]
     Indication: HYPERTENSION
     Dosage: 1 OT, QD
  3. CRESTOR [Concomitant]
     Indication: HYPERCHOLESTEROLAEMIA
     Dosage: 1 OT, QD
  4. DIOVAN [Suspect]
     Indication: HYPERTENSION
     Dosage: 160 MG, QD
     Route: 048
     Dates: start: 20050920
  5. ACTONEL [Concomitant]
     Indication: OSTEOPOROSIS
     Dosage: 1 OT, QW

REACTIONS (3)
  - MYOCARDIAL INFARCTION [None]
  - CATHETERISATION CARDIAC [None]
  - BLOOD PRESSURE INCREASED [None]
